FAERS Safety Report 8207363 (Version 5)
Quarter: 2015Q4

REPORT INFORMATION
  Report Type: Spontaneous
  Country: US (occurrence: US)
  Receive Date: 20111028
  Receipt Date: 20151029
  Transmission Date: 20160305
  Serious: Yes (Other)
  Sender: FDA-Public Use
  Company Number: US-GLAXOSMITHKLINE-A0926082A

PATIENT
  Sex: Female

DRUGS (6)
  1. ADVAIR HFA [Suspect]
     Active Substance: FLUTICASONE PROPIONATE\SALMETEROL XINAFOATE
     Dosage: 2 PUFF(S), QD
     Route: 055
  2. TRIAMTERENE. [Concomitant]
     Active Substance: TRIAMTERENE
  3. LITHIUM. [Concomitant]
     Active Substance: LITHIUM
  4. HYDROXYCHLOROQUINE [Concomitant]
     Active Substance: HYDROXYCHLOROQUINE
  5. VENTOLIN [Suspect]
     Active Substance: ALBUTEROL SULFATE
     Indication: PRODUCT USED FOR UNKNOWN INDICATION
     Dosage: UNK, PRN
     Route: 055
     Dates: start: 20100430
  6. ADVAIR HFA [Suspect]
     Active Substance: FLUTICASONE PROPIONATE\SALMETEROL XINAFOATE
     Indication: PRODUCT USED FOR UNKNOWN INDICATION
     Dosage: UNK, U
     Route: 055
     Dates: start: 20100430

REACTIONS (6)
  - Visual acuity reduced [Unknown]
  - Malaise [Unknown]
  - Disability [Unknown]
  - Ill-defined disorder [Unknown]
  - Nasopharyngitis [Unknown]
  - Arthralgia [Not Recovered/Not Resolved]
